FAERS Safety Report 7440833-0 (Version None)
Quarter: 2011Q2

REPORT INFORMATION
  Report Type: 
  Country: None (occurrence: None)
  Receive Date: 20110427
  Receipt Date: 20110413
  Transmission Date: 20111010
  Serious: Yes (Death)
  Sender: FDA-Public Use
  Company Number: CH-BAYER-2011-031775

PATIENT
  Sex: Female

DRUGS (9)
  1. IMUREK [Concomitant]
     Dosage: 50 MG, QD
     Route: 048
  2. CONCOR [Concomitant]
     Dosage: 5 MG, QD
     Route: 048
  3. ASPIRIN [Suspect]
     Dosage: 100 MG, QD
     Route: 048
     Dates: end: 20110101
  4. ELTROXIN [Concomitant]
     Dosage: DAILY DOSE 150 ?G
     Route: 048
  5. MARCOUMAR [Suspect]
     Dosage: 3 MG, PRN
     Dates: start: 20101230, end: 20110108
  6. NORVASC [Concomitant]
     Dosage: 5 MG, QD
     Route: 048
  7. FRAGMIN [Suspect]
     Dosage: 15000 IU, QD
     Route: 058
     Dates: start: 20101230, end: 20110108
  8. CALCIMAGON-D3 [Concomitant]
     Dosage: UNK
     Route: 048
  9. PRAVASTATIN [Concomitant]
     Dosage: 40 MG, QD

REACTIONS (5)
  - CARDIAC FAILURE [None]
  - LACTIC ACIDOSIS [None]
  - RENAL FAILURE ACUTE [None]
  - ABDOMINAL PAIN [None]
  - MUSCLE HAEMORRHAGE [None]
